FAERS Safety Report 6169862-4 (Version None)
Quarter: 2009Q2

REPORT INFORMATION
  Report Type: 
  Country: None (occurrence: None)
  Receive Date: 20090424
  Receipt Date: 20090416
  Transmission Date: 20091009
  Serious: Yes (Other)
  Sender: FDA-Public Use
  Company Number: 250417

PATIENT
  Age: 52 Year
  Sex: Male

DRUGS (1)
  1. (ETHANOL) [Suspect]
     Indication: CHEMICAL POISONING
     Dosage: 500 ML, ORAL
     Route: 048

REACTIONS (5)
  - AGITATION [None]
  - APNOEA [None]
  - AREFLEXIA [None]
  - OFF LABEL USE [None]
  - STUPOR [None]
